FAERS Safety Report 17461686 (Version 4)
Quarter: 2020Q2

REPORT INFORMATION
  Report Type: Report from Study
  Country: US (occurrence: US)
  Receive Date: 20200226
  Receipt Date: 20200611
  Transmission Date: 20200713
  Serious: Yes (Other)
  Sender: FDA-Public Use
  Company Number: NVSC2020US047920

PATIENT
  Age: 35 Year
  Sex: Female

DRUGS (3)
  1. COUMADIN [Concomitant]
     Active Substance: WARFARIN SODIUM
     Indication: PRODUCT USED FOR UNKNOWN INDICATION
     Dosage: UNK
     Route: 065
  2. ENTRESTO [Suspect]
     Active Substance: SACUBITRIL\VALSARTAN
     Dosage: 50 MG, BID (24/26 MG)
     Route: 048
  3. ENTRESTO [Suspect]
     Active Substance: SACUBITRIL\VALSARTAN
     Indication: CARDIAC FAILURE
     Dosage: 200 MG (97/103 MG), BID
     Route: 048
     Dates: start: 2018

REACTIONS (5)
  - Pain [Unknown]
  - Presyncope [Unknown]
  - Gastrointestinal haemorrhage [Unknown]
  - Arrhythmia [Unknown]
  - Product dose omission [Unknown]

NARRATIVE: CASE EVENT DATE: 201902
